FAERS Safety Report 7531441-1 (Version None)
Quarter: 2011Q2

REPORT INFORMATION
  Report Type: 
  Country: None (occurrence: None)
  Receive Date: 20110608
  Receipt Date: 20110603
  Transmission Date: 20111010
  Serious: Yes (Death, Hospitalization)
  Sender: FDA-Public Use
  Company Number: DE-BRISTOL-MYERS SQUIBB COMPANY-15803117

PATIENT
  Age: 77 Year
  Sex: Male
  Weight: 85 kg

DRUGS (10)
  1. NECITUMUMAB [Suspect]
     Indication: NON-SMALL CELL LUNG CANCER STAGE IV
     Dosage: LAST RECEIVED ON 20JAN2011
     Route: 065
     Dates: start: 20110114
  2. FRAXIPARINE [Concomitant]
     Dates: start: 20110302
  3. XIMOVAN [Concomitant]
  4. CALCIUM GLUCONATE [Concomitant]
     Dates: start: 20110304
  5. CALCICHEW D3 [Concomitant]
  6. CALCIUM CARBONATE + CALCIUM GLUBIONATE [Concomitant]
     Dates: start: 20110304
  7. ALDACTONE [Concomitant]
     Dates: start: 20110226
  8. CONCENTRATED RED BLOOD CELLS [Concomitant]
     Dates: start: 20110309, end: 20110309
  9. CISPLATIN [Suspect]
     Indication: NON-SMALL CELL LUNG CANCER STAGE IV
     Dosage: LAST RECEIVED ON 08MAR2011
     Route: 065
     Dates: start: 20110114
  10. ALIMTA [Suspect]
     Indication: NON-SMALL CELL LUNG CANCER STAGE IV
     Dosage: LAST RECEIVED ON 08MAR2011
     Route: 065
     Dates: start: 20110114

REACTIONS (2)
  - MULTI-ORGAN FAILURE [None]
  - NEUTROPENIA [None]
